FAERS Safety Report 5427044-5 (Version None)
Quarter: 2007Q3

REPORT INFORMATION
  Report Type: 
  Country: None (occurrence: None)
  Receive Date: 20070824
  Receipt Date: 20070824
  Transmission Date: 20080115
  Serious: Yes (Hospitalization)
  Sender: FDA-Public Use
  Company Number: None

PATIENT
  Age: 41 Year
  Sex: Male

DRUGS (2)
  1. CITALOPRAM HYDROBROMIDE [Suspect]
     Indication: BIPOLAR I DISORDER
     Dosage: 20MG EVERY DAY PO
     Route: 048
     Dates: start: 20070626, end: 20070821
  2. DIAZEPAM [Suspect]
     Dosage: 2MG BID PO
     Route: 048
     Dates: start: 20070619

REACTIONS (2)
  - DIZZINESS [None]
  - FALL [None]
